FAERS Safety Report 4929364-7 (Version None)
Quarter: 2006Q1

REPORT INFORMATION
  Report Type: 
  Country: None (occurrence: None)
  Receive Date: 20060224
  Receipt Date: 20060216
  Transmission Date: 20060701
  Serious: Yes (Disabling)
  Sender: FDA-Public Use
  Company Number: GBWYE402716FEB06

PATIENT
  Age: 73 Year
  Sex: Female

DRUGS (10)
  1. EFFEXOR XR [Suspect]
     Indication: DEPRESSION
     Dosage: 150 MG 1X PER 1 DAY, ORAL
     Route: 048
     Dates: start: 20000101
  2. CLOPIDOGREL [Suspect]
     Indication: CAROTID BRUIT
     Dosage: 75 MG 1X PER 1 DAY, ORAL
     Route: 048
     Dates: start: 20010501, end: 20051206
  3. DOXAZOSIN (DOXAZOSIN) [Concomitant]
  4. SIMVASTATIN [Concomitant]
  5. CANDESARTAN (CANDESARTAN) [Concomitant]
  6. ALENDRONIC ACID (ALENDRONIC ACID) [Concomitant]
  7. ZOLPIDEM TARTRATE [Concomitant]
  8. ACETAMINOPHEN [Concomitant]
  9. ASCORBIC ACID [Concomitant]
  10. ECHINACEA (ECHINACEA EXTRACT) [Concomitant]

REACTIONS (4)
  - EXTRADURAL HAEMATOMA [None]
  - PARALYSIS FLACCID [None]
  - PARAPLEGIA [None]
  - SPINAL CORD COMPRESSION [None]
